FAERS Safety Report 15388412 (Version 2)
Quarter: 2018Q4

REPORT INFORMATION
  Report Type: Spontaneous
  Country: JP (occurrence: JP)
  Receive Date: 20180915
  Receipt Date: 20181027
  Transmission Date: 20190204
  Serious: Yes (Life-Threatening, Other)
  Sender: FDA-Public Use
  Company Number: JP-009507513-1809JPN000265J

PATIENT
  Age: 71 Year
  Sex: Male
  Weight: 63 kg

DRUGS (17)
  1. ROCURONIUM BROMIDE. [Suspect]
     Active Substance: ROCURONIUM BROMIDE
     Dosage: 20 MG, UNK(BOLUS)
     Route: 042
     Dates: start: 20180829
  2. SEVOFLURANE. [Concomitant]
     Active Substance: SEVOFLURANE
     Dosage: UNK
     Route: 065
  3. NEO-SYNESIN [Concomitant]
     Active Substance: PHENYLEPHRINE HYDROCHLORIDE
     Dosage: UNK, PRN(BOLUS)
     Route: 065
     Dates: start: 20180829
  4. BRIDION [Suspect]
     Active Substance: SUGAMMADEX
     Indication: NEUROMUSCULAR BLOCKADE REVERSAL
     Dosage: 200 MG, QD
     Route: 042
     Dates: start: 20180829
  5. BRIDION [Suspect]
     Active Substance: SUGAMMADEX
     Dosage: 200 MG, UNK
     Route: 042
     Dates: start: 201809, end: 201809
  6. BRIDION [Suspect]
     Active Substance: SUGAMMADEX
     Dosage: 100 MG, UNK
     Route: 042
     Dates: start: 201809, end: 201809
  7. FENTANYL. [Concomitant]
     Active Substance: FENTANYL
     Dosage: 100 MICROGRAM, UNK
     Route: 008
     Dates: start: 20180829
  8. ULTIVA [Concomitant]
     Active Substance: REMIFENTANIL HYDROCHLORIDE
     Dosage: 5 ML, QH(BEFORE INTUBATION 0.8 ML BOLUS)
     Route: 065
     Dates: start: 20180829
  9. ROCURONIUM BROMIDE. [Suspect]
     Active Substance: ROCURONIUM BROMIDE
     Dosage: UNK
     Route: 042
     Dates: start: 20180829
  10. LIDOCAINE. [Concomitant]
     Active Substance: LIDOCAINE
     Dosage: UNK
     Route: 008
     Dates: start: 20180829
  11. FENTANYL. [Concomitant]
     Active Substance: FENTANYL
     Dosage: 400 MICROGRAM, UNK
     Route: 042
     Dates: start: 20180829
  12. DIPRIVAN [Concomitant]
     Active Substance: PROPOFOL
     Dosage: UNK
     Route: 051
  13. ROCURONIUM BROMIDE. [Suspect]
     Active Substance: ROCURONIUM BROMIDE
     Dosage: 25 MILLIGRAM, QH
     Route: 042
     Dates: start: 20180829
  14. PROPOFOL. [Concomitant]
     Active Substance: PROPOFOL
     Dosage: 100 MG, UNK
     Route: 065
     Dates: start: 20180829
  15. ANAPEINE [Concomitant]
     Active Substance: ROPIVACAINE HYDROCHLORIDE
     Dosage: 4 ML, QH
     Route: 008
     Dates: start: 20180829
  16. PROPOFOL. [Concomitant]
     Active Substance: PROPOFOL
     Dosage: 6 MILLIGRAM/KILOGRAM, QH
     Route: 065
     Dates: start: 20180829
  17. EPHEDRIN [Concomitant]
     Active Substance: EPHEDRINE HYDROCHLORIDE
     Dosage: UNK, PRN(BOLUS)
     Route: 065
     Dates: start: 20180829

REACTIONS (3)
  - Hypoxia [Recovered/Resolved]
  - Amylase increased [Unknown]
  - Hypotonia [Recovered/Resolved]

NARRATIVE: CASE EVENT DATE: 20180829
